FAERS Safety Report 5272674-7 (Version None)
Quarter: 2007Q1

REPORT INFORMATION
  Report Type: 
  Country: None (occurrence: None)
  Receive Date: 20070322
  Receipt Date: 20070307
  Transmission Date: 20070707
  Serious: Yes (Hospitalization)
  Sender: FDA-Public Use
  Company Number: US-AMGEN-STX214097

PATIENT
  Sex: Female

DRUGS (1)
  1. ENBREL [Suspect]
     Indication: RHEUMATOID ARTHRITIS
     Route: 058
     Dates: start: 20010101

REACTIONS (7)
  - ARTHRALGIA [None]
  - FALL [None]
  - FISTULA [None]
  - INTESTINAL RESECTION [None]
  - LIMB INJURY [None]
  - PAIN IN EXTREMITY [None]
  - SKIN INJURY [None]
